FAERS Safety Report 7826816-7 (Version None)
Quarter: 2011Q4

REPORT INFORMATION
  Report Type: 
  Country: None (occurrence: None)
  Receive Date: 20111020
  Receipt Date: 20111012
  Transmission Date: 20120403
  Serious: Yes (Other)
  Sender: FDA-Public Use
  Company Number: AU-UCBSA-042965

PATIENT
  Age: 59 Year
  Sex: Male

DRUGS (4)
  1. KEPPRA [Suspect]
     Indication: EPILEPSY
     Route: 048
     Dates: start: 20110501
  2. LIPITOR [Concomitant]
  3. ZESTRIL [Concomitant]
  4. WARFARIN SODIUM [Interacting]
     Indication: HEART VALVE REPLACEMENT
     Dosage: STARTED 12 YEARS AGO
     Route: 048

REACTIONS (4)
  - DRUG INTERACTION [None]
  - INTRA-ABDOMINAL HAEMATOMA [None]
  - INTERNATIONAL NORMALISED RATIO FLUCTUATION [None]
  - LIVER FUNCTION TEST ABNORMAL [None]
